FAERS Safety Report 18254148 (Version 1)
Quarter: 2020Q3

REPORT INFORMATION
  Report Type: Spontaneous
  Country: US (occurrence: US)
  Receive Date: 20200910
  Receipt Date: 20200910
  Transmission Date: 20201103
  Serious: Yes (Hospitalization)
  Sender: FDA-Public Use
  Company Number: US-ENDO PHARMACEUTICALS INC-2020-005894

PATIENT
  Age: 69 Year
  Sex: Female

DRUGS (4)
  1. MORPHINE [Suspect]
     Active Substance: MORPHINE
     Indication: MUSCULOSKELETAL PAIN
     Dosage: 5 MG FOLLOWED IN 5 MIN BY AN ADDITIONAL 5 MG, UNKNOWN
     Route: 042
  2. MORPHINE [Suspect]
     Active Substance: MORPHINE
     Dosage: 4 MG 20 MINUTES AFTER PRESENTATION, UNKNOWN
     Route: 065
  3. KETALAR [Suspect]
     Active Substance: KETAMINE HYDROCHLORIDE
     Indication: MUSCULOSKELETAL PAIN
     Dosage: 16 MG, SINGLE
     Route: 040
  4. AMITRIPTYLINE [Concomitant]
     Active Substance: AMITRIPTYLINE
     Indication: PRODUCT USED FOR UNKNOWN INDICATION

REACTIONS (7)
  - Confusional state [Recovered/Resolved]
  - Amnesia [Not Recovered/Not Resolved]
  - Off label use [Recovered/Resolved]
  - Slow speech [Recovered/Resolved]
  - Anterograde amnesia [Not Recovered/Not Resolved]
  - Mental status changes [Recovered/Resolved]
  - Aphasia [Recovered/Resolved]
